FAERS Safety Report 25597899 (Version 1)
Quarter: 2025Q3

REPORT INFORMATION
  Report Type: Spontaneous
  Country: EU (occurrence: EU)
  Receive Date: 20250723
  Receipt Date: 20250723
  Transmission Date: 20251021
  Serious: Yes (Other)
  Sender: MYLAN
  Company Number: None

PATIENT
  Age: 48 Year
  Sex: Male

DRUGS (13)
  1. ACETAMINOPHEN [Suspect]
     Active Substance: ACETAMINOPHEN
     Indication: Viral infection
  2. IBUPROFEN [Suspect]
     Active Substance: IBUPROFEN
     Indication: Viral infection
  3. CYCLOPHOSPHAMIDE [Suspect]
     Active Substance: CYCLOPHOSPHAMIDE
     Indication: Encephalitis
     Dates: start: 20241211, end: 20241211
  4. CYCLOPHOSPHAMIDE [Suspect]
     Active Substance: CYCLOPHOSPHAMIDE
     Dates: start: 20250128, end: 20250128
  5. CYCLOPHOSPHAMIDE [Suspect]
     Active Substance: CYCLOPHOSPHAMIDE
     Dates: start: 20250325, end: 20250325
  6. CYCLOPHOSPHAMIDE [Suspect]
     Active Substance: CYCLOPHOSPHAMIDE
     Dates: start: 20250422, end: 20250422
  7. MABTHERA [Concomitant]
     Active Substance: RITUXIMAB
     Indication: Encephalitis
     Dates: start: 20241212, end: 20241212
  8. MABTHERA [Concomitant]
     Active Substance: RITUXIMAB
     Dates: start: 20241231, end: 20241231
  9. MABTHERA [Concomitant]
     Active Substance: RITUXIMAB
     Dates: start: 20250325, end: 20250325
  10. ESCITALOPRAM [Concomitant]
     Active Substance: ESCITALOPRAM OXALATE
  11. ALPRAZOLAM [Concomitant]
     Active Substance: ALPRAZOLAM
  12. DOXYCYCLINE [Concomitant]
     Active Substance: DOXYCYCLINE
  13. MESNA [Concomitant]
     Active Substance: MESNA

REACTIONS (1)
  - Hepatic cytolysis [Recovered/Resolved]

NARRATIVE: CASE EVENT DATE: 20250225
